FAERS Safety Report 20895880 (Version 1)
Quarter: 2022Q2

REPORT INFORMATION
  Report Type: Other
  Country: US (occurrence: None)
  Receive Date: 20220531
  Receipt Date: 20220531
  Transmission Date: 20220721
  Serious: Yes (Death)
  Sender: FDA-Public Use
  Company Number: US-ROCHE-3097792

PATIENT
  Sex: Male

DRUGS (8)
  1. ESBRIET [Suspect]
     Active Substance: PIRFENIDONE
     Indication: Idiopathic pulmonary fibrosis
     Route: 048
  2. LEVALBUTEROL [Concomitant]
     Active Substance: LEVALBUTEROL
  3. FUROSEMIDE [Concomitant]
     Active Substance: FUROSEMIDE
  4. OMEPRAZOLE [Concomitant]
     Active Substance: OMEPRAZOLE
  5. SOTALOL [Concomitant]
     Active Substance: SOTALOL
  6. SIMVASTATIN [Concomitant]
     Active Substance: SIMVASTATIN
  7. TRAMADOL [Concomitant]
     Active Substance: TRAMADOL
  8. ZOFRAN [Concomitant]
     Active Substance: ONDANSETRON HYDROCHLORIDE

REACTIONS (1)
  - Cardiac failure [Fatal]
